FAERS Safety Report 23737920 (Version 1)
Quarter: 2024Q2

REPORT INFORMATION
  Report Type: Spontaneous
  Country: CA (occurrence: None)
  Receive Date: 20240412
  Receipt Date: 20240412
  Transmission Date: 20240716
  Serious: Yes (Other)
  Sender: FDA-Public Use
  Company Number: CA-ROCHE-3542428

PATIENT
  Age: 13 Year
  Sex: Male

DRUGS (2)
  1. SOMATROPIN [Suspect]
     Active Substance: SOMATROPIN
     Indication: Short stature
     Route: 058
  2. SOMATROPIN [Suspect]
     Active Substance: SOMATROPIN
     Route: 058

REACTIONS (12)
  - Arthralgia [Recovered/Resolved]
  - Anxiety [Recovered/Resolved]
  - Blood parathyroid hormone increased [Recovered/Resolved]
  - Dizziness [Recovered/Resolved]
  - Lymphocyte count increased [Recovered/Resolved]
  - Mean cell haemoglobin concentration increased [Recovered/Resolved]
  - Mean cell volume decreased [Recovered/Resolved]
  - Monocyte count increased [Recovered/Resolved]
  - Red cell distribution width decreased [Recovered/Resolved]
  - Sleep disorder [Recovered/Resolved]
  - Stress [Recovered/Resolved]
  - Syncope [Recovered/Resolved]
